FAERS Safety Report 10375921 (Version 4)
Quarter: 2014Q4

REPORT INFORMATION
  Report Type: Report from Study
  Country: JP (occurrence: JP)
  Receive Date: 20140811
  Receipt Date: 20141103
  Transmission Date: 20150528
  Serious: Yes (Death, Life-Threatening)
  Sender: FDA-Public Use
  Company Number: JP-ACTELION-A-CH2014-95076

PATIENT
  Age: 4 Year
  Sex: Male
  Weight: 6.5 kg

DRUGS (34)
  1. TRACLEER [Suspect]
     Active Substance: BOSENTAN\BOSENTAN MONOHYDRATE
     Dosage: 1.56 MG, BID
     Route: 048
     Dates: start: 20110704, end: 20110706
  2. TRACLEER [Suspect]
     Active Substance: BOSENTAN\BOSENTAN MONOHYDRATE
     Dosage: 12.5 MG, BID
     Route: 048
     Dates: start: 20110828, end: 20110920
  3. TRACLEER [Suspect]
     Active Substance: BOSENTAN\BOSENTAN MONOHYDRATE
     Dosage: 21.88 MG, BID
     Route: 048
     Dates: start: 20121121, end: 20121209
  4. DIPYRIDAMOLE. [Suspect]
     Active Substance: DIPYRIDAMOLE
     Indication: PRODUCT USED FOR UNKNOWN INDICATION
     Dosage: 30 MG, UNK
     Route: 048
     Dates: end: 20121030
  5. ACETAZOLAMIDE. [Concomitant]
     Active Substance: ACETAZOLAMIDE
  6. SILDENAFIL CITRATE. [Concomitant]
     Active Substance: SILDENAFIL CITRATE
  7. TRACLEER [Suspect]
     Active Substance: BOSENTAN\BOSENTAN MONOHYDRATE
     Dosage: 25 MG, BID
     Route: 048
     Dates: start: 20121210, end: 20130130
  8. RISPERIDONE. [Suspect]
     Active Substance: RISPERIDONE
     Dosage: 0.4 MG, UNK
     Route: 048
     Dates: start: 20110928, end: 20121111
  9. FUROSEMIDE. [Concomitant]
     Active Substance: FUROSEMIDE
  10. TORASEMIDE [Concomitant]
     Active Substance: TORSEMIDE
  11. PIMOBENDAN [Concomitant]
     Active Substance: PIMOBENDAN
  12. TRACLEER [Suspect]
     Active Substance: BOSENTAN\BOSENTAN MONOHYDRATE
     Dosage: 3.13 MG, BID
     Route: 048
     Dates: start: 20110707, end: 20110720
  13. TRACLEER [Suspect]
     Active Substance: BOSENTAN\BOSENTAN MONOHYDRATE
     Dosage: 15.63 MG, BID
     Route: 048
     Dates: start: 20110921, end: 20111108
  14. TRACLEER [Suspect]
     Active Substance: BOSENTAN\BOSENTAN MONOHYDRATE
     Dosage: 25 MG, BID
     Route: 048
     Dates: start: 20120306, end: 20120529
  15. TRACLEER [Suspect]
     Active Substance: BOSENTAN\BOSENTAN MONOHYDRATE
     Dosage: 28.13 MG, BID
     Route: 048
     Dates: start: 20120530, end: 20121022
  16. TOLVAPTAN [Concomitant]
     Active Substance: TOLVAPTAN
  17. TRACLEER [Suspect]
     Active Substance: BOSENTAN\BOSENTAN MONOHYDRATE
     Indication: PULMONARY HYPERTENSION
     Dosage: 21.88 MG, BID
     Route: 048
     Dates: start: 20111211, end: 20120305
  18. TRACLEER [Suspect]
     Active Substance: BOSENTAN\BOSENTAN MONOHYDRATE
     Dosage: 6.25 MG, BID
     Route: 048
     Dates: start: 20110801, end: 20110807
  19. TRACLEER [Suspect]
     Active Substance: BOSENTAN\BOSENTAN MONOHYDRATE
     Dosage: 18.75 MG, BID
     Route: 048
     Dates: start: 20111109, end: 20111210
  20. TRACLEER [Suspect]
     Active Substance: BOSENTAN\BOSENTAN MONOHYDRATE
     Dosage: 18.75 MG, BID
     Route: 048
     Dates: start: 20121023, end: 20121111
  21. TRACLEER [Suspect]
     Active Substance: BOSENTAN\BOSENTAN MONOHYDRATE
     Dosage: 18.75 MG, BID
     Route: 048
     Dates: start: 20121115, end: 20121120
  22. POTASSIUM GLUCONATE [Concomitant]
     Active Substance: POTASSIUM GLUCONATE
  23. CARPERITIDE [Concomitant]
     Active Substance: CARPERITIDE
  24. TRACLEER [Suspect]
     Active Substance: BOSENTAN\BOSENTAN MONOHYDRATE
     Dosage: 12.5 MG, BID
     Route: 048
     Dates: start: 20121113, end: 20121114
  25. RISPERIDONE. [Suspect]
     Active Substance: RISPERIDONE
     Indication: SEDATION
     Dosage: 0.3 MG, UNK
     Route: 048
     Dates: start: 2010, end: 20110927
  26. RISPERIDONE. [Suspect]
     Active Substance: RISPERIDONE
     Dosage: 0.4 MG, UNK
     Route: 048
     Dates: start: 20130109, end: 20130122
  27. TRACLEER [Suspect]
     Active Substance: BOSENTAN\BOSENTAN MONOHYDRATE
     Dosage: 9.38 MG, BID
     Route: 048
     Dates: start: 20110808, end: 20110827
  28. SPIRONOLACTONE. [Concomitant]
     Active Substance: SPIRONOLACTONE
  29. TRICHLORMETHIAZIDE [Concomitant]
     Active Substance: TRICHLORMETHIAZIDE
  30. BERAPROST SODIUM [Concomitant]
     Active Substance: BERAPROST SODIUM
  31. OXYGEN. [Concomitant]
     Active Substance: OXYGEN
  32. TRACLEER [Suspect]
     Active Substance: BOSENTAN\BOSENTAN MONOHYDRATE
     Dosage: 4.69 MG, BID
     Route: 048
     Dates: start: 20110721, end: 20110731
  33. TRACLEER [Suspect]
     Active Substance: BOSENTAN\BOSENTAN MONOHYDRATE
     Dosage: 28.13 MG, BID
     Route: 048
     Dates: start: 20130131, end: 20130213
  34. ENALAPRIL [Suspect]
     Active Substance: ENALAPRIL
     Indication: RIGHT VENTRICULAR FAILURE
     Dosage: UNK
     Route: 048
     Dates: start: 20121008, end: 20121109

REACTIONS (24)
  - Tachycardia [Unknown]
  - Cardiac failure [Fatal]
  - Bronchitis [Not Recovered/Not Resolved]
  - Gastroenteritis [Recovering/Resolving]
  - Dyspepsia [Recovering/Resolving]
  - Vomiting [Recovering/Resolving]
  - Malnutrition [Unknown]
  - Restlessness [Recovering/Resolving]
  - Hypoalbuminaemia [Recovering/Resolving]
  - Gastrointestinal haemorrhage [Recovering/Resolving]
  - Pyrexia [Unknown]
  - Iron deficiency anaemia [Recovering/Resolving]
  - Transfusion [Recovered/Resolved]
  - Respiratory tract infection [Unknown]
  - Peripheral coldness [Unknown]
  - Gastritis [Recovering/Resolving]
  - Gamma-glutamyltransferase increased [Recovered/Resolved]
  - Anaemia [Recovered/Resolved]
  - Diarrhoea [Recovering/Resolving]
  - Anxiety [Recovering/Resolving]
  - Pneumonia [Not Recovered/Not Resolved]
  - White blood cell count increased [Unknown]
  - Nausea [Recovering/Resolving]
  - Hypovitaminosis [Not Recovered/Not Resolved]

NARRATIVE: CASE EVENT DATE: 20120302
